FAERS Safety Report 4370955-2 (Version None)
Quarter: 2004Q2

REPORT INFORMATION
  Report Type: 
  Country: None (occurrence: None)
  Receive Date: 20040601
  Receipt Date: 20040514
  Transmission Date: 20050107
  Serious: Yes (Hospitalization)
  Sender: FDA-Public Use
  Company Number: 185089

PATIENT
  Age: 27 Year
  Sex: Female
  Weight: 86 kg

DRUGS (4)
  1. AVONEX [Suspect]
     Indication: MULTIPLE SCLEROSIS
     Dosage: 30 MCG QW IM
     Route: 030
     Dates: start: 20010701, end: 20031016
  2. AVONEX [Suspect]
     Indication: MULTIPLE SCLEROSIS
     Dosage: 30 MCG QW IM
     Route: 030
     Dates: start: 20031023
  3. METROPROTOL [Concomitant]
  4. SAROTEN ^LUNDBECK^ [Concomitant]

REACTIONS (10)
  - AUTOIMMUNE THYROIDITIS [None]
  - BLADDER PAIN [None]
  - JOINT SWELLING [None]
  - MICTURITION URGENCY [None]
  - MUSCLE CRAMP [None]
  - MUSCULOSKELETAL DISORDER [None]
  - OEDEMA PERIPHERAL [None]
  - PYREXIA [None]
  - RHEUMATOID FACTOR [None]
  - SCLERODERMA [None]
